FAERS Safety Report 8757935 (Version 2)
Quarter: 2012Q4

REPORT INFORMATION
  Report Type: Report from Study
  Country: IL (occurrence: IL)
  Receive Date: 20120828
  Receipt Date: 20121127
  Transmission Date: 20130627
  Serious: Yes (Death)
  Sender: FDA-Public Use
  Company Number: IL-ASTELLAS-2012EU006098

PATIENT

DRUGS (4)
  1. PROGRAF [Suspect]
     Indication: LUNG TRANSPLANT
     Dosage: UNK
     Route: 065
  2. METHYLPREDNISOLON                  /00049601/ [Concomitant]
     Indication: LUNG TRANSPLANT
     Dosage: UNK
     Route: 042
  3. PREDNISONE [Concomitant]
     Indication: LUNG TRANSPLANT
     Dosage: UNK
     Route: 048
  4. MYCOPHENOLATE MOFETIL [Concomitant]
     Indication: LUNG TRANSPLANT
     Dosage: UNK
     Route: 065

REACTIONS (2)
  - Off label use [Unknown]
  - Klebsiella infection [Fatal]
